FAERS Safety Report 8962999 (Version 1)
Quarter: 2012Q4

REPORT INFORMATION
  Report Type: 
  Country: CO (occurrence: CO)
  Receive Date: 20121214
  Receipt Date: 20121214
  Transmission Date: 20130627
  Serious: Yes (Other)
  Sender: FDA-Public Use
  Company Number: CO-JNJFOC-20121204698

PATIENT
  Age: 78 Year
  Sex: Female

DRUGS (1)
  1. REMINYL [Suspect]
     Indication: VASCULAR DEMENTIA
     Route: 048
     Dates: start: 20120327, end: 20120806

REACTIONS (2)
  - Amnesia [Unknown]
  - Hypertension [Unknown]
